FAERS Safety Report 25009941 (Version 2)
Quarter: 2025Q2

REPORT INFORMATION
  Report Type: Report from Study
  Country: GB (occurrence: GB)
  Receive Date: 20250225
  Receipt Date: 20250411
  Transmission Date: 20250716
  Serious: Yes (Hospitalization)
  Sender: SAMSUNG BIOEPIS
  Company Number: GB-SAMSUNG BIOEPIS-SB-2024-39770

PATIENT
  Age: 62 Year
  Sex: Female

DRUGS (3)
  1. ETANERCEPT [Suspect]
     Active Substance: ETANERCEPT
     Indication: Rheumatoid arthritis
     Route: 058
     Dates: end: 20250129
  2. ETANERCEPT [Suspect]
     Active Substance: ETANERCEPT
     Dates: start: 20250306
  3. COVID-19 VACCINE [Concomitant]
     Indication: COVID-19 immunisation

REACTIONS (6)
  - Sepsis [Unknown]
  - Asthenia [Unknown]
  - Pyrexia [Unknown]
  - Rheumatoid arthritis [Unknown]
  - Memory impairment [Unknown]
  - COVID-19 [Unknown]
